FAERS Safety Report 6432869-3 (Version None)
Quarter: 2009Q4

REPORT INFORMATION
  Report Type: 
  Country: None (occurrence: None)
  Receive Date: 20091109
  Receipt Date: 20091030
  Transmission Date: 20100525
  Serious: Yes (Other)
  Sender: FDA-Public Use
  Company Number: B0602387A

PATIENT
  Age: 82 Year
  Sex: Female

DRUGS (2)
  1. TYKERB [Suspect]
     Indication: METASTASIS
     Route: 065
     Dates: start: 20071001
  2. XELODA [Suspect]
     Indication: METASTASIS
     Route: 065

REACTIONS (5)
  - DIARRHOEA [None]
  - LUNG NEOPLASM [None]
  - METASTASES TO LUNG [None]
  - RASH [None]
  - TUMOUR MARKER INCREASED [None]
